FAERS Safety Report 10610678 (Version 1)
Quarter: 2014Q4

REPORT INFORMATION
  Report Type: Spontaneous
  Country: US (occurrence: None)
  Receive Date: 20141124
  Receipt Date: 20141124
  Transmission Date: 20150529
  Serious: Yes (Other)
  Sender: FDA-Public Use
  Company Number: ADR-2009-7280

PATIENT
  Sex: Male

DRUGS (3)
  1. CLONIDINE. [Suspect]
     Active Substance: CLONIDINE
  2. LIORESAL [Suspect]
     Active Substance: BACLOFEN
     Indication: MUSCLE SPASTICITY
  3. COMPOUNDED BACLOFEN [Suspect]
     Active Substance: BACLOFEN

REACTIONS (13)
  - No therapeutic response [None]
  - Dysstasia [None]
  - Gait disturbance [None]
  - Rebound effect [None]
  - Vomiting [None]
  - Muscle spasticity [None]
  - Urinary incontinence [None]
  - Nausea [None]
  - Fall [None]
  - Faecal incontinence [None]
  - Muscle rigidity [None]
  - Pump reservoir issue [None]
  - Seizure [None]
